FAERS Safety Report 7314680-4 (Version None)
Quarter: 2011Q1

REPORT INFORMATION
  Report Type: 
  Country: None (occurrence: None)
  Receive Date: 20110225
  Receipt Date: 20101129
  Transmission Date: 20110831
  Serious: No
  Sender: FDA-Public Use
  Company Number: US-MYLANLABS-2010S1020426

PATIENT
  Age: 21 Year
  Sex: Female
  Weight: 70.31 kg

DRUGS (3)
  1. AMNESTEEM [Suspect]
     Indication: ACNE CYSTIC
     Route: 048
     Dates: start: 20100602
  2. AMNESTEEM [Suspect]
     Dates: end: 20101103
  3. ACCUTANE [Suspect]
     Indication: ACNE CYSTIC

REACTIONS (3)
  - ACNE CYSTIC [None]
  - DRUG INEFFECTIVE [None]
  - DRY SKIN [None]
